FAERS Safety Report 19801252 (Version 1)
Quarter: 2021Q3

REPORT INFORMATION
  Report Type: Spontaneous
  Country: US (occurrence: US)
  Receive Date: 20210908
  Receipt Date: 20210908
  Transmission Date: 20211014
  Serious: Yes (Death)
  Sender: FDA-Public Use
  Company Number: US-SA-2021SA294948

PATIENT
  Age: 9 Year
  Sex: Male

DRUGS (1)
  1. LUMIZYME [Suspect]
     Active Substance: ALGLUCOSIDASE ALFA
     Indication: GLYCOGEN STORAGE DISEASE TYPE II
     Dosage: 1150 MG, QOW
     Route: 042
     Dates: start: 20210608, end: 20210825

REACTIONS (1)
  - Metabolic disorder [Fatal]

NARRATIVE: CASE EVENT DATE: 2021
